FAERS Safety Report 4875408-0 (Version None)
Quarter: 2006Q1

REPORT INFORMATION
  Report Type: 
  Country: None (occurrence: None)
  Receive Date: 20060109
  Receipt Date: 20051229
  Transmission Date: 20060701
  Serious: Yes (Other)
  Sender: FDA-Public Use
  Company Number: JP-BRISTOL-MYERS SQUIBB COMPANY-13238373

PATIENT
  Age: 34 Year
  Sex: Female

DRUGS (5)
  1. ENDOXAN [Suspect]
     Indication: BREAST CANCER
     Route: 042
     Dates: start: 20051104, end: 20051104
  2. EPIRUBICIN [Suspect]
     Indication: BREAST CANCER
     Route: 042
     Dates: start: 20051104, end: 20051104
  3. DEXAMETHASONE SODIUM PHOSPHATE [Concomitant]
     Dates: start: 20051104, end: 20051104
  4. ZANTAC [Concomitant]
     Dates: start: 20051104, end: 20051104
  5. FLUOROURACIL [Concomitant]
     Indication: BREAST CANCER
     Route: 042
     Dates: start: 20051104, end: 20051104

REACTIONS (1)
  - PHLEBITIS [None]
